FAERS Safety Report 5860799-4 (Version None)
Quarter: 2008Q3

REPORT INFORMATION
  Report Type: 
  Country: None (occurrence: None)
  Receive Date: 20080827
  Receipt Date: 20071127
  Transmission Date: 20090109
  Serious: No
  Sender: FDA-Public Use
  Company Number: US-ABBOTT-07P-163-0426712-00

PATIENT
  Sex: Female
  Weight: 72.64 kg

DRUGS (2)
  1. COATED PDS [Suspect]
     Indication: BLOOD CHOLESTEROL INCREASED
     Dosage: (COATED)
     Route: 048
     Dates: start: 20071125
  2. COATED PDS [Suspect]
     Dosage: (UNCOATED)
     Dates: start: 20040101, end: 20071125

REACTIONS (1)
  - FLUSHING [None]
